FAERS Safety Report 7573098-X (Version None)
Quarter: 2011Q2

REPORT INFORMATION
  Report Type: 
  Country: None (occurrence: None)
  Receive Date: 20110627
  Receipt Date: 20110621
  Transmission Date: 20111010
  Serious: Yes (Hospitalization)
  Sender: FDA-Public Use
  Company Number: US-SANOFI-AVENTIS-2011SA030370

PATIENT
  Age: 54 Year
  Sex: Female
  Weight: 58.18 kg

DRUGS (6)
  1. ALAVERT [Concomitant]
  2. PRILOSEC [Concomitant]
     Indication: CREST SYNDROME
     Dates: start: 20050101
  3. MAXALT /USA/ [Concomitant]
     Indication: MIGRAINE
  4. PLAQUENIL [Suspect]
     Indication: SCLERODERMA
     Route: 048
     Dates: start: 20100812, end: 20100903
  5. PLAQUENIL [Suspect]
     Indication: CREST SYNDROME
     Route: 048
     Dates: start: 20100812, end: 20100903
  6. ESTROGEL [Concomitant]
     Indication: NIGHT SWEATS
     Dates: start: 20080101, end: 20100908

REACTIONS (15)
  - RASH [None]
  - SWELLING [None]
  - SKIN EXFOLIATION [None]
  - PRURITUS [None]
  - SLEEP DISORDER [None]
  - SKIN DISCOLOURATION [None]
  - NERVE INJURY [None]
  - ERYTHEMA [None]
  - PAIN [None]
  - ARTHRITIS [None]
  - GAIT DISTURBANCE [None]
  - PHOTOSENSITIVITY REACTION [None]
  - HYPERSENSITIVITY [None]
  - ALOPECIA [None]
  - HYPERTENSION [None]
